FAERS Safety Report 8374416-5 (Version None)
Quarter: 2012Q2

REPORT INFORMATION
  Report Type: 
  Country: None (occurrence: None)
  Receive Date: 20120521
  Receipt Date: 20120511
  Transmission Date: 20120825
  Serious: Yes (Hospitalization)
  Sender: FDA-Public Use
  Company Number: JP-ALEXION PHARMACEUTICALS INC.-A201101229

PATIENT
  Age: 30 Year
  Sex: Male

DRUGS (8)
  1. ALLOPURINOL [Concomitant]
     Dosage: 300 MG, QD
     Dates: start: 20110616
  2. PL GRANULES [Concomitant]
     Dosage: 3 G, QD
     Dates: start: 20110728, end: 20110808
  3. URSO 250 [Concomitant]
     Dosage: 300 MG, QD
     Dates: start: 20110728
  4. MEDICON [Concomitant]
     Dosage: 45 MG, QD
     Dates: start: 20110728, end: 20110808
  5. ACETAMINOPHEN [Concomitant]
     Dosage: 200 MG, PRN
     Dates: start: 20110605
  6. SOLIRIS [Suspect]
     Dosage: 900 MG, Q2W
     Route: 042
  7. MUCOSTA [Concomitant]
     Dosage: 300 MG, QD
     Dates: start: 20110728, end: 20110808
  8. SOLIRIS [Suspect]
     Indication: PAROXYSMAL NOCTURNAL HAEMOGLOBINURIA
     Dosage: 600 MG, QW
     Route: 042
     Dates: start: 20110801

REACTIONS (2)
  - CELLULITIS [None]
  - STAPHYLOCOCCAL SKIN INFECTION [None]
